FAERS Safety Report 6381355-8 (Version None)
Quarter: 2009Q3

REPORT INFORMATION
  Report Type: 
  Country: None (occurrence: None)
  Receive Date: 20090923
  Receipt Date: 20090908
  Transmission Date: 20100115
  Serious: Yes (Hospitalization)
  Sender: FDA-Public Use
  Company Number: 2009AL005985

PATIENT
  Age: 53 Year
  Sex: Female

DRUGS (2)
  1. EPIRUBICIN HYDROCHLORIDE INJECTION [Suspect]
     Indication: BREAST CANCER METASTATIC
  2. VINFLUNINE [Concomitant]

REACTIONS (1)
  - CENTRAL LINE INFECTION [None]
